FAERS Safety Report 11740847 (Version 1)
Quarter: 2015Q4

REPORT INFORMATION
  Report Type: Spontaneous
  Country: FR (occurrence: FR)
  Receive Date: 20151114
  Receipt Date: 20151114
  Transmission Date: 20160304
  Serious: Yes (Hospitalization)
  Sender: FDA-Public Use
  Company Number: FR-EMD SERONO-8052156

PATIENT
  Age: 37 Year
  Sex: Female

DRUGS (3)
  1. OVITRELLE [Suspect]
     Active Substance: CHORIOGONADOTROPIN ALFA
     Indication: OVULATION INDUCTION
     Dosage: FORM STRENGTH: 250 MICROGRAMS/0.5 ML.
     Route: 058
     Dates: start: 20140922
  2. GONAL-F [Suspect]
     Active Substance: FOLLITROPIN
     Indication: PRODUCT USED FOR UNKNOWN INDICATION
     Route: 058
     Dates: start: 20140910, end: 20140921
  3. DECAPEPTYL [Suspect]
     Active Substance: TRIPTORELIN ACETATE
     Indication: PRODUCT USED FOR UNKNOWN INDICATION
     Dosage: DECAPEPTYL LP (EXTENDED RELEASE) 3 MG, POWDER AND SOLVENT FOR SUSPENSION FOR INJECTION
     Route: 030

REACTIONS (1)
  - Adnexal torsion [Recovered/Resolved]

NARRATIVE: CASE EVENT DATE: 20141103
